FAERS Safety Report 9440944 (Version 1)
Quarter: 2013Q3

REPORT INFORMATION
  Report Type: Spontaneous
  Country: CA (occurrence: CA)
  Receive Date: 20130805
  Receipt Date: 20130805
  Transmission Date: 20140515
  Serious: Yes (Other)
  Sender: FDA-Public Use
  Company Number: CA-TEVA-423006USA

PATIENT
  Age: 56 Year
  Sex: Female

DRUGS (7)
  1. GABAPENTIN [Suspect]
     Indication: NEURALGIA
     Dosage: (600 MG) 1/4 TAB (150 MG THREE TIMES/DAY)
     Route: 048
     Dates: start: 20130723
  2. GABAPENTIN [Suspect]
     Dosage: 600 MILLIGRAM DAILY; HS
     Route: 048
     Dates: start: 201307
  3. GABAPENTIN [Suspect]
     Dosage: HS (QUARTER OF A TABLET)
     Route: 048
     Dates: start: 2010, end: 20130723
  4. OMEGA 3 [Suspect]
     Indication: INFLAMMATION
     Dosage: 15 ML THREE TIMES/DAY
     Route: 048
     Dates: start: 201307
  5. OMEGA-3 TRIGLYCERIDES (OMEGA-3 FATTY ACID) [Suspect]
     Indication: INFLAMMATION
     Dosage: 750 MG/15ML
     Route: 048
     Dates: start: 201307
  6. OMEGA 3 FATTY ACID [Suspect]
     Indication: INFLAMMATION
     Dosage: 500 MG/15 ML
     Route: 048
     Dates: start: 201307
  7. IBUPROFEN [Concomitant]
     Dates: start: 20130718

REACTIONS (4)
  - Loss of consciousness [Not Recovered/Not Resolved]
  - Somnolence [Not Recovered/Not Resolved]
  - Sleep disorder [Not Recovered/Not Resolved]
  - Feeling abnormal [Not Recovered/Not Resolved]
